FAERS Safety Report 16530013 (Version 1)
Quarter: 2019Q3

REPORT INFORMATION
  Report Type: Spontaneous
  Country: SK (occurrence: SK)
  Receive Date: 20190704
  Receipt Date: 20190704
  Transmission Date: 20191004
  Serious: Yes (Hospitalization)
  Sender: FDA-Public Use
  Company Number: SK-TEVA-2019-SK-1073589

PATIENT
  Age: 88 Year
  Sex: Male

DRUGS (5)
  1. FLECTOR [Suspect]
     Active Substance: DICLOFENAC EPOLAMINE
     Indication: ARTHRALGIA
     Route: 048
  2. DONEPEZIL. [Concomitant]
     Active Substance: DONEPEZIL
     Indication: DEMENTIA ALZHEIMER^S TYPE
     Dosage: 1-0-0
     Route: 048
  3. ACCUZIDE [Concomitant]
     Active Substance: HYDROCHLOROTHIAZIDE\QUINAPRIL HYDROCHLORIDE
     Indication: HYPERTENSION
     Dosage: 1/2-0-0
     Route: 048
  4. NAKOM MITE [Concomitant]
     Active Substance: CARBIDOPA\LEVODOPA
     Indication: PARKINSON^S DISEASE
     Dosage: 3 DOSAGE FORM
     Route: 048
  5. DICLOBENE [Suspect]
     Active Substance: DICLOFENAC SODIUM
     Indication: ARTHRALGIA
     Route: 048

REACTIONS (1)
  - Gastric disorder [Recovered/Resolved]

NARRATIVE: CASE EVENT DATE: 20190321
